FAERS Safety Report 13716057 (Version 28)
Quarter: 2020Q1

REPORT INFORMATION
  Report Type: Other
  Country: CA (occurrence: CA)
  Receive Date: 20170705
  Receipt Date: 20200316
  Transmission Date: 20200409
  Serious: Yes (Other)
  Sender: FDA-Public Use
  Company Number: CA-APOTEX-2017AP013722

PATIENT
  Age: 44 Year
  Sex: Female
  Weight: 63 kg

DRUGS (104)
  1. OXYCODONE/ACETAMINOPHEN [Suspect]
     Active Substance: ACETAMINOPHEN\OXYCODONE HYDROCHLORIDE
     Indication: PRODUCT USED FOR UNKNOWN INDICATION
     Dosage: UNK
     Route: 065
  2. SULFAMETHOXAZOLE, TRIMETHOPRIM [Suspect]
     Active Substance: SULFAMETHOXAZOLE\TRIMETHOPRIM
     Indication: PRODUCT USED FOR UNKNOWN INDICATION
     Dosage: UNK
     Route: 065
  3. PREGABALIN. [Suspect]
     Active Substance: PREGABALIN
     Dosage: 300 MG, QD
     Route: 048
  4. RANITIDINE. [Suspect]
     Active Substance: RANITIDINE
     Dosage: 150 MG, QD
     Route: 048
  5. NAPROXEN. [Suspect]
     Active Substance: NAPROXEN
     Indication: PRODUCT USED FOR UNKNOWN INDICATION
     Dosage: 250 MG, BID
     Route: 048
  6. NAPROXEN. [Suspect]
     Active Substance: NAPROXEN
     Dosage: 500 MG, UNK
     Route: 048
  7. APO-ALENDRONATE [Suspect]
     Active Substance: ALENDRONATE SODIUM
     Indication: PRODUCT USED FOR UNKNOWN INDICATION
     Dosage: UNK
     Route: 065
  8. XELJANZ [Suspect]
     Active Substance: TOFACITINIB CITRATE
     Dosage: 2 MG, TWO EVERY ONE DAY
     Route: 048
  9. METHYLPREDNISOLONE ACETATE. [Suspect]
     Active Substance: METHYLPREDNISOLONE ACETATE
     Dosage: UNK
     Route: 065
  10. ESOMEPRAZOLE MAGNESIUM W/NAPROXEN [Suspect]
     Active Substance: ESOMEPRAZOLE MAGNESIUM\NAPROXEN
     Indication: PRODUCT USED FOR UNKNOWN INDICATION
     Dosage: UNK
     Route: 065
  11. ALENDRONATE SODIUM. [Suspect]
     Active Substance: ALENDRONATE SODIUM
     Indication: PRODUCT USED FOR UNKNOWN INDICATION
     Dosage: UNK
     Route: 065
  12. APO-NAPROXEN [Suspect]
     Active Substance: NAPROXEN
     Dosage: 500 MG, Q.12H
     Route: 048
  13. APO-RANITIDINE [Suspect]
     Active Substance: RANITIDINE
     Indication: PRODUCT USED FOR UNKNOWN INDICATION
     Dosage: 150 MG, BID
     Route: 048
  14. RANITIDINE. [Suspect]
     Active Substance: RANITIDINE
     Dosage: 150 MG, Q.12H
     Route: 048
  15. NAPROXEN. [Suspect]
     Active Substance: NAPROXEN
     Dosage: 250 MG, QD
     Route: 065
  16. AMITRIPTYLINE [Suspect]
     Active Substance: AMITRIPTYLINE
     Indication: PRODUCT USED FOR UNKNOWN INDICATION
     Dosage: 75 MG, QD
     Route: 048
  17. LYRICA [Suspect]
     Active Substance: PREGABALIN
     Dosage: 300 MG, QD
     Route: 048
  18. PANTOLOC                           /01263201/ [Suspect]
     Active Substance: PANTOPRAZOLE SODIUM
     Indication: PRODUCT USED FOR UNKNOWN INDICATION
     Dosage: UNK UNK, Q.WK.
     Route: 048
  19. AMITRIPTYLINE PAMOATE [Suspect]
     Active Substance: AMITRIPTYLINE PAMOATE
     Indication: PRODUCT USED FOR UNKNOWN INDICATION
     Dosage: 75 MG, QD
     Route: 048
     Dates: start: 2011
  20. BACTRIM [Suspect]
     Active Substance: SULFAMETHOXAZOLE\TRIMETHOPRIM
     Indication: PRODUCT USED FOR UNKNOWN INDICATION
     Dosage: UNK
     Route: 065
  21. MOBICOX [Suspect]
     Active Substance: MELOXICAM
     Indication: PRODUCT USED FOR UNKNOWN INDICATION
     Dosage: UNK
     Route: 065
  22. HYDROXYCHLOROQUINE [Concomitant]
     Active Substance: HYDROXYCHLOROQUINE
     Indication: PRODUCT USED FOR UNKNOWN INDICATION
     Dosage: UNK
     Route: 065
  23. PREGABALIN. [Suspect]
     Active Substance: PREGABALIN
     Indication: RHEUMATOID ARTHRITIS
     Dosage: 150 MG, BID
     Route: 048
  24. PREGABALIN. [Suspect]
     Active Substance: PREGABALIN
     Dosage: 150 MG, QD
     Route: 048
  25. RANITIDINE. [Suspect]
     Active Substance: RANITIDINE
     Indication: PRODUCT USED FOR UNKNOWN INDICATION
     Dosage: 300 MG, QD
     Route: 048
     Dates: start: 2012
  26. NAPROXEN. [Suspect]
     Active Substance: NAPROXEN
     Dosage: 500 MG, BID
     Route: 048
     Dates: start: 2011
  27. NAPROXEN. [Suspect]
     Active Substance: NAPROXEN
     Dosage: 250 MG, QD
     Route: 048
  28. ACETAMINOPHEN. [Suspect]
     Active Substance: ACETAMINOPHEN
     Indication: PRODUCT USED FOR UNKNOWN INDICATION
     Dosage: UNK
     Route: 065
  29. METHOTREXATE. [Suspect]
     Active Substance: METHOTREXATE
     Dosage: 20 MG, Q.WK.
     Route: 058
  30. XELJANZ [Suspect]
     Active Substance: TOFACITINIB CITRATE
     Dosage: 5 MG, QD
     Route: 048
  31. METHYLPREDNISOLONE SODIUM SUCCINATE. [Suspect]
     Active Substance: METHYLPREDNISOLONE SODIUM SUCCINATE
     Indication: PRODUCT USED FOR UNKNOWN INDICATION
     Dosage: UNK
     Route: 065
  32. CELEBREX [Concomitant]
     Active Substance: CELECOXIB
     Indication: PRODUCT USED FOR UNKNOWN INDICATION
     Route: 065
  33. NAPROXEN. [Concomitant]
     Active Substance: NAPROXEN
     Indication: PRODUCT USED FOR UNKNOWN INDICATION
     Dosage: UNK
     Route: 065
  34. APO-PREDNISONE [Suspect]
     Active Substance: PREDNISONE
     Indication: PRODUCT USED FOR UNKNOWN INDICATION
     Dosage: 15 MG, QD
     Route: 065
     Dates: start: 2012
  35. RANITIDINE. [Suspect]
     Active Substance: RANITIDINE
     Dosage: 300 MG, Q.WK.
     Route: 048
  36. NAPROXEN. [Suspect]
     Active Substance: NAPROXEN
     Dosage: 1000 MG, QD
     Route: 048
  37. ESOMEPRAZOLE SODIUM. [Suspect]
     Active Substance: ESOMEPRAZOLE SODIUM
     Indication: PRODUCT USED FOR UNKNOWN INDICATION
     Dosage: UNK
     Route: 048
  38. ENBREL [Suspect]
     Active Substance: ETANERCEPT
     Dosage: 50 MG, QD
     Route: 058
  39. HUMIRA [Suspect]
     Active Substance: ADALIMUMAB
     Dosage: 40 MG, UNK
     Route: 058
  40. XELJANZ [Suspect]
     Active Substance: TOFACITINIB CITRATE
     Indication: RHEUMATOID ARTHRITIS
     Dosage: 5 MG, BID
     Route: 048
     Dates: start: 20140927
  41. ADALIMUMAB [Suspect]
     Active Substance: ADALIMUMAB
     Indication: PRODUCT USED FOR UNKNOWN INDICATION
     Dosage: 40 MG, UNK
     Route: 058
     Dates: start: 201008, end: 201312
  42. ALENDRONATE [Suspect]
     Active Substance: ALENDRONATE SODIUM
     Indication: PRODUCT USED FOR UNKNOWN INDICATION
     Dosage: UNK
     Route: 065
  43. APO-NAPROXEN [Suspect]
     Active Substance: NAPROXEN
     Indication: PRODUCT USED FOR UNKNOWN INDICATION
     Dosage: 250 MG, BID
     Route: 048
  44. APO-NAPROXEN [Suspect]
     Active Substance: NAPROXEN
     Dosage: 500 MG, QD
     Route: 048
  45. APO-PREDNISONE [Suspect]
     Active Substance: PREDNISONE
     Dosage: UNK
     Route: 065
  46. AZATHIOPRINE. [Suspect]
     Active Substance: AZATHIOPRINE
     Indication: PRODUCT USED FOR UNKNOWN INDICATION
     Dosage: 150 MG, UNK
     Route: 065
  47. PREDNISONE. [Suspect]
     Active Substance: PREDNISONE
     Indication: RHEUMATOID ARTHRITIS
     Dosage: 15 MG, QD
     Route: 065
     Dates: start: 2012
  48. PREDNISONE. [Suspect]
     Active Substance: PREDNISONE
     Indication: PRODUCT USED FOR UNKNOWN INDICATION
     Dosage: UNK
     Route: 065
  49. MELOXICAM. [Suspect]
     Active Substance: MELOXICAM
     Indication: PRODUCT USED FOR UNKNOWN INDICATION
     Dosage: 150 MG, QD
     Route: 065
  50. OXYCODONE [Suspect]
     Active Substance: OXYCODONE
     Indication: PRODUCT USED FOR UNKNOWN INDICATION
     Dosage: UNK
     Route: 005
  51. HUMIRA [Suspect]
     Active Substance: ADALIMUMAB
     Dosage: 40 MG, QD
     Route: 065
  52. METHOTREXATE. [Suspect]
     Active Substance: METHOTREXATE
     Indication: RHEUMATOID ARTHRITIS
     Dosage: 20 MG, Q.WK.
     Route: 048
     Dates: start: 2007, end: 2008
  53. XELJANZ [Suspect]
     Active Substance: TOFACITINIB CITRATE
     Dosage: 10 MG, QD
     Route: 048
  54. TOFACITINIB CITRATE [Suspect]
     Active Substance: TOFACITINIB CITRATE
     Dosage: 10 MG, QD
     Route: 048
  55. HYDROXYCHLOROQUINE PHOSPHATE [Concomitant]
     Active Substance: HYDROXYCHLOROQUINE DIPHOSPHATE
     Indication: PRODUCT USED FOR UNKNOWN INDICATION
     Dosage: UNK
     Route: 065
  56. HYDROXYCHLOROQUINE SULFATE. [Concomitant]
     Active Substance: HYDROXYCHLOROQUINE SULFATE
     Indication: PRODUCT USED FOR UNKNOWN INDICATION
     Dosage: UNK
     Route: 065
  57. APO-NAPROXEN [Suspect]
     Active Substance: NAPROXEN
     Dosage: 500 MG, BID
     Route: 048
     Dates: start: 2011
  58. APO-NAPROXEN [Suspect]
     Active Substance: NAPROXEN
     Dosage: 1000 MG, QD
     Route: 048
  59. APO-MELOXICAM [Suspect]
     Active Substance: MELOXICAM
     Dosage: UNK
     Route: 065
  60. APO-RANITIDINE [Suspect]
     Active Substance: RANITIDINE
     Dosage: 300 MG, QD
     Route: 048
  61. APO-RANITIDINE [Suspect]
     Active Substance: RANITIDINE
     Dosage: 300 MG, QD
     Route: 048
     Dates: start: 2012
  62. DEPO-MEDROL [Suspect]
     Active Substance: METHYLPREDNISOLONE ACETATE
     Indication: RHEUMATOID ARTHRITIS
     Dosage: UNK
     Route: 014
     Dates: end: 201312
  63. ENBREL [Suspect]
     Active Substance: ETANERCEPT
     Dosage: UNK
     Route: 065
     Dates: end: 201807
  64. ENBREL [Suspect]
     Active Substance: ETANERCEPT
     Dosage: 50 MG, Q.WK.
     Route: 058
  65. HUMIRA [Suspect]
     Active Substance: ADALIMUMAB
     Indication: DRUG THERAPY
     Dosage: 40 MG, UNK
     Route: 058
     Dates: start: 201008, end: 201312
  66. PANTOLOC                           /01263201/ [Suspect]
     Active Substance: PANTOPRAZOLE SODIUM
     Dosage: UNK
     Route: 065
  67. SEPTRA [Suspect]
     Active Substance: SULFAMETHOXAZOLE\TRIMETHOPRIM
     Indication: PRODUCT USED FOR UNKNOWN INDICATION
     Dosage: UNK
     Route: 065
  68. SULFASALAZINE. [Suspect]
     Active Substance: SULFASALAZINE
     Indication: RHEUMATOID ARTHRITIS
     Dosage: 1 G, QD
     Route: 048
     Dates: start: 20071221, end: 20180211
  69. SULFASALAZINE. [Suspect]
     Active Substance: SULFASALAZINE
     Dosage: 1000 MG, Q.WK.
     Route: 048
  70. METHYLPREDNISOLONE ACETATE. [Suspect]
     Active Substance: METHYLPREDNISOLONE ACETATE
     Indication: RHEUMATOID ARTHRITIS
     Dosage: UNK
     Route: 014
  71. ESOMEPRAZOLE MAGNESIUM TRIHYDRATE [Suspect]
     Active Substance: ESOMEPRAZOLE MAGNESIUM
     Indication: PRODUCT USED FOR UNKNOWN INDICATION
     Dosage: UNK
     Route: 065
  72. APO-AMITRIPTYLINE [Suspect]
     Active Substance: AMITRIPTYLINE HYDROCHLORIDE
     Indication: PRODUCT USED FOR UNKNOWN INDICATION
     Dosage: 75 MG, QD
     Route: 048
     Dates: start: 2011
  73. APO-AMITRIPTYLINE [Suspect]
     Active Substance: AMITRIPTYLINE HYDROCHLORIDE
     Dosage: UNK
     Route: 065
  74. NAPROXEN. [Suspect]
     Active Substance: NAPROXEN
     Dosage: 250 MG, UNK
     Route: 048
  75. PREDNISONE. [Suspect]
     Active Substance: PREDNISONE
     Dosage: 150 MG, QD
     Route: 065
  76. PANTOPRAZOLE [Suspect]
     Active Substance: PANTOPRAZOLE
     Indication: PRODUCT USED FOR UNKNOWN INDICATION
     Dosage: UNK
     Route: 048
  77. TRIMETHOPRIM. [Suspect]
     Active Substance: TRIMETHOPRIM
     Indication: PRODUCT USED FOR UNKNOWN INDICATION
     Route: 065
  78. HUMIRA [Suspect]
     Active Substance: ADALIMUMAB
     Dosage: 40 MG, UNK
     Route: 058
  79. IMURAN [Suspect]
     Active Substance: AZATHIOPRINE
     Indication: PRODUCT USED FOR UNKNOWN INDICATION
     Dosage: 150 MG, UNK
     Route: 065
  80. OXYCOCET [Suspect]
     Active Substance: ACETAMINOPHEN\OXYCODONE HYDROCHLORIDE
     Indication: PRODUCT USED FOR UNKNOWN INDICATION
     Route: 065
  81. SULFASALAZINE. [Suspect]
     Active Substance: SULFASALAZINE
     Dosage: 1 G, QD
     Route: 048
  82. VIMOVO [Suspect]
     Active Substance: ESOMEPRAZOLE MAGNESIUM\NAPROXEN
     Indication: PRODUCT USED FOR UNKNOWN INDICATION
     Dosage: UNK
     Route: 048
  83. XELJANZ [Suspect]
     Active Substance: TOFACITINIB CITRATE
     Dosage: 2 DF, QD
     Route: 048
  84. TOFACITINIB CITRATE [Suspect]
     Active Substance: TOFACITINIB CITRATE
     Dosage: 10 MG, QD
     Route: 065
  85. ETANERCEPT [Suspect]
     Active Substance: ETANERCEPT
     Indication: RHEUMATOID ARTHRITIS
     Dosage: 50 MG, UNK
     Route: 058
  86. FOLIC ACID. [Concomitant]
     Active Substance: FOLIC ACID
     Indication: PRODUCT USED FOR UNKNOWN INDICATION
     Dosage: UNK
     Route: 065
  87. CELECOXIB. [Concomitant]
     Active Substance: CELECOXIB
     Indication: PRODUCT USED FOR UNKNOWN INDICATION
     Route: 065
  88. APO-AMITRIPTYLINE [Suspect]
     Active Substance: AMITRIPTYLINE HYDROCHLORIDE
     Dosage: 75 MG, QD
     Route: 065
  89. AZATHIOPRINE. [Suspect]
     Active Substance: AZATHIOPRINE
     Indication: RHEUMATOID ARTHRITIS
     Dosage: 150 MG, BID
     Route: 048
  90. RANITIDINE. [Suspect]
     Active Substance: RANITIDINE
     Dosage: 300 MG, QD
     Route: 048
  91. NAPROXEN. [Suspect]
     Active Substance: NAPROXEN
     Dosage: 500 MG, QD
     Route: 048
  92. PREDNISONE. [Suspect]
     Active Substance: PREDNISONE
     Dosage: 15 MG, QD
     Route: 048
  93. ESOMEPRAZOLE. [Suspect]
     Active Substance: ESOMEPRAZOLE MAGNESIUM
     Indication: PRODUCT USED FOR UNKNOWN INDICATION
     Dosage: UNK
     Route: 065
  94. ENBREL [Suspect]
     Active Substance: ETANERCEPT
     Indication: RHEUMATOID ARTHRITIS
     Dosage: 50 MG, Q.WK.
     Route: 058
     Dates: start: 200812, end: 201007
  95. LYRICA [Suspect]
     Active Substance: PREGABALIN
     Indication: RHEUMATOID ARTHRITIS
     Dosage: 150 MG, BID
     Route: 048
  96. METHOTREXATE. [Suspect]
     Active Substance: METHOTREXATE
     Dosage: UNK
     Route: 058
     Dates: start: 2008
  97. SULFASALAZINE. [Suspect]
     Active Substance: SULFASALAZINE
     Dosage: 1 G, QD
     Route: 048
  98. TOFACITINIB CITRATE [Suspect]
     Active Substance: TOFACITINIB CITRATE
     Indication: RHEUMATOID ARTHRITIS
     Dosage: 5 MG, BID
     Route: 048
     Dates: start: 20140927
  99. ALENDRONIC ACID [Suspect]
     Active Substance: ALENDRONIC ACID
     Indication: PRODUCT USED FOR UNKNOWN INDICATION
     Dosage: UNK
     Route: 048
  100. RATIO-OXYCOCET [Suspect]
     Active Substance: ACETAMINOPHEN\OXYCODONE HYDROCHLORIDE
     Indication: PRODUCT USED FOR UNKNOWN INDICATION
     Dosage: UNK, Q.WK.
     Route: 048
  101. PLAQUENIL                          /00072602/ [Concomitant]
     Active Substance: HYDROXYCHLOROQUINE DIPHOSPHATE
     Indication: PRODUCT USED FOR UNKNOWN INDICATION
     Dosage: UNK
     Route: 065
  102. APO-MELOXICAM [Suspect]
     Active Substance: MELOXICAM
     Indication: PRODUCT USED FOR UNKNOWN INDICATION
     Dosage: 150 MG, QD
     Route: 065
  103. APO-PREDNISONE [Suspect]
     Active Substance: PREDNISONE
     Indication: RHEUMATOID ARTHRITIS
     Dosage: 150 MG, QD
     Route: 065
  104. APO-RANITIDINE [Suspect]
     Active Substance: RANITIDINE
     Dosage: 300 MG, Q.WK.
     Route: 048

REACTIONS (57)
  - Bursitis [Unknown]
  - Fibromyalgia [Unknown]
  - Joint effusion [Unknown]
  - Rheumatoid arthritis [Unknown]
  - Tenosynovitis stenosans [Unknown]
  - Pain [Unknown]
  - Therapeutic product effect decreased [Unknown]
  - Dry eye [Unknown]
  - Lung disorder [Unknown]
  - Nodule [Unknown]
  - Ocular hyperaemia [Unknown]
  - Synovial cyst [Unknown]
  - Nausea [Unknown]
  - Therapeutic product effect decreased [Unknown]
  - Cushingoid [Unknown]
  - Flank pain [Unknown]
  - Interstitial lung disease [Unknown]
  - Erythema [Unknown]
  - Eye pain [Unknown]
  - Swelling face [Unknown]
  - Antinuclear antibody [Unknown]
  - Atelectasis [Unknown]
  - Conjunctivitis [Unknown]
  - Arthralgia [Unknown]
  - Pruritus [Unknown]
  - Contraindicated product administered [Unknown]
  - Photophobia [Unknown]
  - Thrombosis [Unknown]
  - Infection [Unknown]
  - Wheezing [Unknown]
  - Pneumonia [Unknown]
  - Eye irritation [Unknown]
  - Impaired work ability [Unknown]
  - Musculoskeletal stiffness [Unknown]
  - Neoplasm malignant [Unknown]
  - Rheumatoid nodule [Unknown]
  - Synovial fluid analysis [Unknown]
  - Joint swelling [Unknown]
  - Pain in extremity [Unknown]
  - Malaise [Unknown]
  - Rash [Unknown]
  - Antinuclear antibody positive [Unknown]
  - Pleuritic pain [Unknown]
  - Peripheral swelling [Unknown]
  - Scleritis [Unknown]
  - Visual impairment [Unknown]
  - Drug ineffective [Unknown]
  - Haemoglobin decreased [Unknown]
  - Red blood cell count decreased [Unknown]
  - Crepitations [Unknown]
  - Feeling jittery [Unknown]
  - Tenderness [Unknown]
  - Ulcer [Unknown]
  - Musculoskeletal pain [Unknown]
  - Dyspnoea [Unknown]
  - Abdominal pain [Unknown]
  - Dry mouth [Unknown]

NARRATIVE: CASE EVENT DATE: 2008
